FAERS Safety Report 15309639 (Version 1)
Quarter: 2018Q3

REPORT INFORMATION
  Report Type: Spontaneous
  Country: US (occurrence: US)
  Receive Date: 20180823
  Receipt Date: 20180823
  Transmission Date: 20181010
  Serious: Yes (Other)
  Sender: FDA-Public Use
  Company Number: US-JNJFOC-20180821862

PATIENT
  Sex: Male

DRUGS (1)
  1. LISTERINE TOTAL CARE ANTICAVITY ? FRESH MINT [Suspect]
     Active Substance: SODIUM FLUORIDE
     Indication: PRODUCT USED FOR UNKNOWN INDICATION
     Dosage: ENTIRE BOTTLE, ONCE
     Route: 048
     Dates: start: 20180815, end: 20180815

REACTIONS (3)
  - Genital haemorrhage [Not Recovered/Not Resolved]
  - Intentional product misuse [Unknown]
  - Incorrect route of drug administration [Unknown]

NARRATIVE: CASE EVENT DATE: 20180815
